FAERS Safety Report 10032320 (Version 2)
Quarter: 2014Q2

REPORT INFORMATION
  Report Type: Spontaneous
  Country: IT (occurrence: IT)
  Receive Date: 20140324
  Receipt Date: 20140502
  Transmission Date: 20141212
  Serious: Yes (Hospitalization)
  Sender: FDA-Public Use
  Company Number: IT-PFIZER INC-2014080272

PATIENT
  Age: 37 Year
  Sex: Male

DRUGS (1)
  1. DIFLUCAN [Suspect]
     Indication: FUNGAL SKIN INFECTION
     Dosage: 100 MG, DAILY
     Route: 048
     Dates: start: 20140204, end: 20140209

REACTIONS (3)
  - Chest pain [Recovered/Resolved]
  - Urticaria [Recovered/Resolved]
  - Drug reaction with eosinophilia and systemic symptoms [Recovered/Resolved]
